FAERS Safety Report 4356642-5 (Version None)
Quarter: 2004Q2

REPORT INFORMATION
  Report Type: 
  Country: None (occurrence: None)
  Receive Date: 20040506
  Receipt Date: 20040426
  Transmission Date: 20050107
  Serious: Yes (Death, Life-Threatening)
  Sender: FDA-Public Use
  Company Number: 04P-056-0258835-00

PATIENT
  Age: 45 Year
  Sex: Male
  Weight: 40 kg

DRUGS (5)
  1. KALETRA [Suspect]
     Indication: HIV INFECTION
     Dosage: 2 DOSAGE FORMS, 1 IN 1 D, PER ORAL
     Route: 048
     Dates: start: 20040217, end: 20040228
  2. EMTRICITABINE [Suspect]
     Indication: HIV INFECTION
     Dosage: 1 DOSAGE FORMS, 1 IN 1 D, PER ORAL
     Route: 048
     Dates: start: 20040217, end: 20040228
  3. TENOFOVIR [Suspect]
     Indication: HIV INFECTION
     Dosage: 1 DOSAGE FORMS, 1 IN 1 D, PER ORAL
     Route: 048
     Dates: start: 20040217, end: 20040226
  4. VALGANCICLOVIR [Concomitant]
  5. BACTRIM [Concomitant]

REACTIONS (1)
  - RENAL FAILURE ACUTE [None]
